FAERS Safety Report 9016995 (Version 1)
Quarter: 2013Q1

REPORT INFORMATION
  Report Type: Spontaneous
  Country: US (occurrence: None)
  Receive Date: 20130114
  Receipt Date: 20130114
  Transmission Date: 20140127
  Serious: No
  Sender: FDA-Public Use
  Company Number: DL2012-0932

PATIENT
  Age: 30 Year
  Sex: Female

DRUGS (3)
  1. MIFEPRISTONE [Suspect]
     Indication: ABORTION INDUCED
     Route: 048
     Dates: start: 20121107
  2. MISOPROSTOL [Suspect]
     Route: 002
     Dates: start: 20121108
  3. DOXYCYCLINE [Concomitant]

REACTIONS (1)
  - Pregnancy [None]
